FAERS Safety Report 13541947 (Version 2)
Quarter: 2017Q3

REPORT INFORMATION
  Report Type: Spontaneous
  Country: RU (occurrence: RU)
  Receive Date: 20170512
  Receipt Date: 20170707
  Transmission Date: 20171127
  Serious: Yes (Other)
  Sender: FDA-Public Use
  Company Number: RU-SA-2017SA020759

PATIENT
  Age: 33 Year
  Sex: Female
  Weight: 51 kg

DRUGS (11)
  1. METYPRED [Concomitant]
     Active Substance: METHYLPREDNISOLONE
     Indication: RHEUMATOID ARTHRITIS
     Dosage: DRUG WAS TAKEN THROUGHOUT OF PREGNANCY
     Route: 048
  2. CLEXANE [Suspect]
     Active Substance: ENOXAPARIN SODIUM
     Indication: PERIPHERAL VENOUS DISEASE
     Dosage: TAKEN FROM: SINCE 19TH WEEK OF PREGNANCY AND STOPPED ON 23 WEEKS OF PREGNANCY
     Route: 058
     Dates: start: 20161228
  3. FEMIBION [Concomitant]
     Active Substance: VITAMINS
     Dosage: STOP DATE- 28 WEEKS OF PREGNANCY
     Route: 048
  4. VITRUM [Concomitant]
     Dosage: START DATE- 28 WEEKS OF PREGNANCY
     Route: 048
  5. CLEXANE [Suspect]
     Active Substance: ENOXAPARIN SODIUM
     Indication: PERIPHERAL VENOUS DISEASE
     Dosage: TAKEN FROM 23 WEEKS OF PREGNANCY
     Route: 058
  6. CLEXANE [Suspect]
     Active Substance: ENOXAPARIN SODIUM
     Indication: THROMBOPHLEBITIS
     Dosage: TAKEN FROM: SINCE 19TH WEEK OF PREGNANCY AND STOPPED ON 23 WEEKS OF PREGNANCY
     Route: 058
     Dates: start: 20161228
  7. CLEXANE [Suspect]
     Active Substance: ENOXAPARIN SODIUM
     Indication: THROMBOPHLEBITIS
     Dosage: TAKEN FROM 23 WEEKS OF PREGNANCY
     Route: 058
  8. FOLIC ACID. [Concomitant]
     Active Substance: FOLIC ACID
     Dosage: STOP DATE- 23 WEEKS OF PREGNANCY
     Route: 048
  9. ANGIOVIT [Concomitant]
     Route: 065
     Dates: start: 20170222, end: 20170228
  10. DIOSMIN [Concomitant]
     Active Substance: DIOSMIN
     Dosage: FROM THE BEGINNING OF THE PREGNANCY
     Route: 048
  11. OESTRADIOL [Concomitant]
     Active Substance: ESTROGENS
     Dosage: DRUG STOP DATE- 10 WEEKS OF PREGNANCY
     Route: 048
     Dates: start: 201612

REACTIONS (3)
  - Epistaxis [Recovered/Resolved]
  - Respiratory tract infection viral [Unknown]
  - Exposure during pregnancy [Unknown]

NARRATIVE: CASE EVENT DATE: 20170323
